FAERS Safety Report 9167651 (Version 1)
Quarter: 2013Q1

REPORT INFORMATION
  Report Type: Spontaneous
  Country: TR (occurrence: None)
  Receive Date: 20130304
  Receipt Date: 20130304
  Transmission Date: 20140127
  Serious: No
  Sender: FDA-Public Use
  Company Number: 2013P1002524

PATIENT
  Age: 26 Year
  Sex: Female

DRUGS (1)
  1. ISOTRETINOIN [Suspect]
     Indication: ACNE CYSTIC

REACTIONS (3)
  - Eczema [None]
  - Toxicity to various agents [None]
  - Toxic encephalopathy [None]
